FAERS Safety Report 7963787-7 (Version None)
Quarter: 2011Q4

REPORT INFORMATION
  Report Type: 
  Country: None (occurrence: None)
  Receive Date: 20111208
  Receipt Date: 20111027
  Transmission Date: 20120403
  Serious: No
  Sender: FDA-Public Use
  Company Number: US-BAYER-2011-105443

PATIENT
  Sex: Male

DRUGS (3)
  1. ALEVE (CAPLET) [Suspect]
     Indication: ARTHRALGIA
  2. ALEVE (CAPLET) [Suspect]
     Indication: BACK PAIN
     Dosage: UNK
     Route: 048
     Dates: start: 20110101
  3. ALEVE (CAPLET) [Suspect]
     Indication: HEADACHE

REACTIONS (4)
  - DIZZINESS [None]
  - THERAPEUTIC RESPONSE DELAYED [None]
  - THERAPEUTIC RESPONSE DECREASED [None]
  - NAUSEA [None]
